FAERS Safety Report 6821040-9 (Version None)
Quarter: 2010Q3

REPORT INFORMATION
  Report Type: 
  Country: None (occurrence: None)
  Receive Date: 20100707
  Receipt Date: 20071219
  Transmission Date: 20110219
  Serious: Yes (Other)
  Sender: FDA-Public Use
  Company Number: US-PFIZER INC-2007100204

PATIENT
  Sex: Male
  Weight: 113.4 kg

DRUGS (1)
  1. ZOLOFT [Suspect]
     Indication: DEPRESSION
     Dates: start: 19930101

REACTIONS (4)
  - DEPRESSION [None]
  - INFLUENZA LIKE ILLNESS [None]
  - NERVOUSNESS [None]
  - SUICIDAL IDEATION [None]
